FAERS Safety Report 8533191-1 (Version None)
Quarter: 2012Q3

REPORT INFORMATION
  Report Type: 
  Country: None (occurrence: None)
  Receive Date: 20120724
  Receipt Date: 20120713
  Transmission Date: 20120928
  Serious: Yes (Life-Threatening)
  Sender: FDA-Public Use
  Company Number: JP-AMGEN-JPNCT2012045322

PATIENT
  Age: 99 Year
  Sex: Female

DRUGS (11)
  1. DARBEPOETIN ALFA - KHK [Suspect]
     Dosage: 30 MUG, Q2WK
     Route: 058
     Dates: start: 20110902, end: 20110930
  2. FUROSEMIDE [Concomitant]
     Indication: RENAL DISORDER
     Dosage: UNK
     Route: 048
  3. ZOLPIDEM [Concomitant]
     Dosage: UNK
     Route: 048
  4. ALLOPURINOL [Concomitant]
     Dosage: UNK
     Route: 048
  5. DARBEPOETIN ALFA - KHK [Suspect]
     Dosage: 30 MUG, QD
     Route: 058
     Dates: start: 20120518, end: 20120518
  6. SENNARIDE [Concomitant]
     Dosage: UNK
     Route: 048
  7. DARBEPOETIN ALFA - KHK [Suspect]
     Dosage: 30 MUG, Q2WK
     Route: 058
     Dates: start: 20120203, end: 20120427
  8. SPIRONOLACTONE [Concomitant]
     Indication: RENAL DISORDER
     Dosage: UNK
     Route: 048
  9. PRAVASTATIN [Concomitant]
     Dosage: UNK
     Route: 048
  10. DARBEPOETIN ALFA - KHK [Suspect]
     Indication: NEPHROGENIC ANAEMIA
     Dosage: 30 MUG, QD
     Route: 058
     Dates: start: 20110722, end: 20110722
  11. DARBEPOETIN ALFA - KHK [Suspect]
     Dosage: 30 MUG, QD
     Route: 058
     Dates: start: 20120629, end: 20120629

REACTIONS (1)
  - CEREBRAL INFARCTION [None]
